FAERS Safety Report 24787861 (Version 1)
Quarter: 2024Q4

REPORT INFORMATION
  Report Type: Spontaneous
  Country: US (occurrence: US)
  Receive Date: 20241230
  Receipt Date: 20241230
  Transmission Date: 20250115
  Serious: No
  Sender: AMGEN
  Company Number: US-AMGEN-USASP2024250664

PATIENT
  Sex: Female

DRUGS (2)
  1. REPATHA [Suspect]
     Active Substance: EVOLOCUMAB
     Indication: Blood cholesterol increased
     Dosage: 140 MILLIGRAM, Q2WK
     Route: 058
  2. REPATHA [Suspect]
     Active Substance: EVOLOCUMAB
     Dosage: UNK, Q3WK
     Route: 058

REACTIONS (6)
  - Blood triglycerides abnormal [Unknown]
  - Low density lipoprotein decreased [Unknown]
  - Very low density lipoprotein abnormal [Unknown]
  - Blood corticotrophin increased [Unknown]
  - Cortisol increased [Unknown]
  - Hormone level abnormal [Unknown]
